FAERS Safety Report 8193891-2 (Version None)
Quarter: 2012Q1

REPORT INFORMATION
  Report Type: 
  Country: None (occurrence: None)
  Receive Date: 20120308
  Receipt Date: 20120228
  Transmission Date: 20120608
  Serious: Yes (Life-Threatening, Hospitalization)
  Sender: FDA-Public Use
  Company Number: SE-JNJFOC-20120213889

PATIENT
  Age: 79 Year
  Sex: Male

DRUGS (7)
  1. NON-STEROIDAL ANTIRHEUMATICS [Concomitant]
     Dates: start: 20090925
  2. PREDNISONE TAB [Concomitant]
     Dates: start: 20070122, end: 20081222
  3. REMICADE [Suspect]
     Indication: RHEUMATOID ARTHRITIS
     Route: 042
     Dates: start: 20030416, end: 20111201
  4. NON-STEROIDAL ANTIRHEUMATICS [Concomitant]
     Dates: start: 20030416, end: 20040205
  5. PREDNISONE TAB [Concomitant]
     Dates: start: 20060321, end: 20060921
  6. METHOTREXATE [Concomitant]
     Dates: start: 20030416
  7. PREDNISONE TAB [Concomitant]
     Dates: start: 20041004, end: 20050922

REACTIONS (4)
  - METASTASES TO BONE [None]
  - NEOPLASM MALIGNANT [None]
  - MUSCULAR WEAKNESS [None]
  - WEIGHT DECREASED [None]
